FAERS Safety Report 4465990-X (Version None)
Quarter: 2004Q3

REPORT INFORMATION
  Report Type: 
  Country: None (occurrence: None)
  Receive Date: 20040930
  Receipt Date: 20040915
  Transmission Date: 20050211
  Serious: Yes (Other)
  Sender: FDA-Public Use
  Company Number: 209270

PATIENT
  Age: 39 Year
  Sex: Female
  Weight: 54 kg

DRUGS (3)
  1. HERCEPTIN [Suspect]
     Indication: CARCINOMA
     Dosage: 108 MG, INTRAVENOUS
     Route: 042
     Dates: start: 20040603, end: 20040819
  2. AREDIA [Suspect]
     Indication: DRUG USE FOR UNKNOWN INDICATION
  3. TAXOTERE [Suspect]
     Indication: DRUG USE FOR UNKNOWN INDICATION

REACTIONS (2)
  - DRUG INTERACTION [None]
  - GENERALISED OEDEMA [None]
